FAERS Safety Report 5744589-9 (Version None)
Quarter: 2008Q2

REPORT INFORMATION
  Report Type: 
  Country: None (occurrence: None)
  Receive Date: 20080520
  Receipt Date: 20070727
  Transmission Date: 20081010
  Serious: No
  Sender: FDA-Public Use
  Company Number: US-ABBOTT-07P-163-0409114-00

PATIENT
  Age: 40 Year
  Sex: Female

DRUGS (1)
  1. TRIAMCINOLONE ACETONIDE [Suspect]
     Indication: ASTHMA
     Route: 050
     Dates: start: 20070619, end: 20070619

REACTIONS (1)
  - SWELLING FACE [None]
